FAERS Safety Report 13023466 (Version 1)
Quarter: 2016Q4

REPORT INFORMATION
  Report Type: Spontaneous
  Country: US (occurrence: US)
  Receive Date: 20161212
  Receipt Date: 20161212
  Transmission Date: 20170207
  Serious: Yes (Other)
  Sender: FDA-Public Use
  Company Number: None

PATIENT
  Age: 30 Year
  Sex: Female
  Weight: 58.5 kg

DRUGS (1)
  1. DYSPORT [Suspect]
     Active Substance: ABOBOTULINUMTOXINA

REACTIONS (10)
  - Hyperhidrosis [None]
  - Ear discomfort [None]
  - Suicidal ideation [None]
  - Diarrhoea [None]
  - Ear haemorrhage [None]
  - Fatigue [None]
  - Speech disorder [None]
  - Depression [None]
  - Feeling abnormal [None]
  - Decreased appetite [None]

NARRATIVE: CASE EVENT DATE: 20161021
